FAERS Safety Report 6111544-9 (Version None)
Quarter: 2009Q1

REPORT INFORMATION
  Report Type: 
  Country: None (occurrence: None)
  Receive Date: 20090310
  Receipt Date: 20090310
  Transmission Date: 20090719
  Serious: Yes (Other)
  Sender: FDA-Public Use
  Company Number: None

PATIENT
  Age: 50 Year
  Sex: Female
  Weight: 104.3273 kg

DRUGS (2)
  1. ADIPEX [Suspect]
     Indication: WEIGHT CONTROL
     Dosage: NORMAL DOSE AS PACKAGED 1 TIME PER DAY, AM PO;  1/2 NORMAL DOSE 1 TIME PER DAY, AM PO
     Route: 048
     Dates: start: 20070501, end: 20071001
  2. ADIPEX [Suspect]
     Indication: WEIGHT CONTROL
     Dosage: NORMAL DOSE AS PACKAGED 1 TIME PER DAY, AM PO;  1/2 NORMAL DOSE 1 TIME PER DAY, AM PO
     Route: 048
     Dates: start: 20071101, end: 20080101

REACTIONS (7)
  - ARTHRALGIA [None]
  - BLOOD PRESSURE INADEQUATELY CONTROLLED [None]
  - BLOOD PRESSURE INCREASED [None]
  - GAIT DISTURBANCE [None]
  - JOINT SWELLING [None]
  - VENOUS INJURY [None]
  - WEIGHT INCREASED [None]
